FAERS Safety Report 4502568-3 (Version None)
Quarter: 2004Q3

REPORT INFORMATION
  Report Type: 
  Country: None (occurrence: None)
  Receive Date: 20040928
  Receipt Date: 20040720
  Transmission Date: 20050211
  Serious: No
  Sender: FDA-Public Use
  Company Number: 04P-163-0267520-00

PATIENT
  Age: 43 Year
  Sex: Female
  Weight: 53.5244 kg

DRUGS (6)
  1. HUMIRA [Suspect]
     Indication: RHEUMATOID ARTHRITIS
     Dosage: 40 MG , SUBCUTANEOUS
     Route: 058
     Dates: start: 20040101
  2. VENLAFAXINE HYDROCHLORIDE [Concomitant]
  3. FLURAZEPAM HCL [Concomitant]
  4. DIAZEPAM [Concomitant]
  5. HYDROXYZINE HYDROCHLORIDE [Concomitant]
  6. CETIRIZINE HCL [Concomitant]

REACTIONS (5)
  - DRUG INEFFECTIVE [None]
  - INFLUENZA LIKE ILLNESS [None]
  - INJECTION SITE BURNING [None]
  - INJECTION SITE ERYTHEMA [None]
  - RHEUMATOID ARTHRITIS [None]
